FAERS Safety Report 8737025 (Version 3)
Quarter: 2014Q1

REPORT INFORMATION
  Report Type: Spontaneous
  Country: US (occurrence: US)
  Receive Date: 20120822
  Receipt Date: 20140305
  Transmission Date: 20141002
  Serious: Yes (Other)
  Sender: FDA-Public Use
  Company Number: US-ASTRAZENECA-2011SE62449

PATIENT
  Age: 79 Year
  Sex: Female
  Weight: 68 kg

DRUGS (13)
  1. SYMBICORT [Suspect]
     Indication: CHRONIC OBSTRUCTIVE PULMONARY DISEASE
     Dosage: 160/4.5 MCG, 2 PUFFS BID
     Route: 055
  2. SYMBICORT [Suspect]
     Indication: CHRONIC OBSTRUCTIVE PULMONARY DISEASE
     Dosage: 80/4.5 MCG, UNKNOWN
     Route: 055
  3. SYMBICORT [Suspect]
     Indication: CHRONIC OBSTRUCTIVE PULMONARY DISEASE
     Dosage: 320 MCG, BID
     Route: 055
  4. NEXIUM [Suspect]
     Indication: GASTRIC DISORDER
     Route: 048
  5. TRIAMETRIAN [Concomitant]
     Indication: ILL-DEFINED DISORDER
  6. TRIAMETRIAN [Concomitant]
     Indication: ILL-DEFINED DISORDER
     Dosage: 37.5/25 HCTZ MG HALF TABLET PER DAY
  7. PREDNISONE [Concomitant]
  8. ZITHROMYCIN [Concomitant]
  9. LORATADINE [Concomitant]
     Indication: MULTIPLE ALLERGIES
  10. PHYTOESTROGEN [Concomitant]
     Indication: ASTHENIA
     Dosage: DAILY
  11. ACETOMINOPHEN [Concomitant]
     Dosage: PRN
  12. OXYGEN [Concomitant]
     Indication: CHRONIC OBSTRUCTIVE PULMONARY DISEASE
     Dosage: DAILY
  13. NEBULIZER [Concomitant]
     Indication: CHRONIC OBSTRUCTIVE PULMONARY DISEASE
     Dosage: DAILY

REACTIONS (8)
  - Pneumonia [Unknown]
  - Retinal detachment [Not Recovered/Not Resolved]
  - Lung disorder [Unknown]
  - Pancreatic disorder [Unknown]
  - Renal disorder [Unknown]
  - Burning sensation [Unknown]
  - Pruritus [Unknown]
  - Oral candidiasis [Unknown]
